FAERS Safety Report 9057446 (Version 2)
Quarter: 2013Q1

REPORT INFORMATION
  Report Type: Spontaneous
  Country: CN (occurrence: CN)
  Receive Date: 20130204
  Receipt Date: 20130226
  Transmission Date: 20140127
  Serious: Yes (Other)
  Sender: FDA-Public Use
  Company Number: CN-PFIZER INC-2013037402

PATIENT
  Age: 7 Year
  Sex: Male

DRUGS (1)
  1. CLINDAMYCIN PHOSPHATE [Suspect]
     Dosage: 0.3 G, UNK
     Route: 041

REACTIONS (2)
  - Tendon injury [Not Recovered/Not Resolved]
  - Adhesion [Not Recovered/Not Resolved]
